FAERS Safety Report 7829037-7 (Version None)
Quarter: 2011Q4

REPORT INFORMATION
  Report Type: 
  Country: None (occurrence: None)
  Receive Date: 20111020
  Receipt Date: 20111013
  Transmission Date: 20120403
  Serious: Yes (Other)
  Sender: FDA-Public Use
  Company Number: JP-B.I. PHARMACEUTICALS,INC./RIDGEFIELD-2011-BP-23048NB

PATIENT
  Sex: Male

DRUGS (14)
  1. LANIRAPID [Concomitant]
     Indication: TACHYARRHYTHMIA
     Dosage: 0.075 MG
     Route: 048
     Dates: start: 19980101
  2. ALOSENN [Concomitant]
     Indication: CONSTIPATION
     Dosage: 1 G
     Route: 048
     Dates: start: 19980101
  3. TOLTERODINE TARTRATE [Concomitant]
     Indication: ATRIOVENTRICULAR BLOCK COMPLETE
     Dosage: 4 MG
     Route: 048
     Dates: start: 19980101
  4. SULFAMETHOXAZOLE [Concomitant]
     Indication: INTERSTITIAL LUNG DISEASE
     Route: 048
     Dates: start: 19980101
  5. PRADAXA [Suspect]
     Indication: TACHYARRHYTHMIA
     Dosage: 220 MG
     Route: 048
     Dates: start: 20110614, end: 20110812
  6. PIMENOL [Concomitant]
     Indication: ATRIOVENTRICULAR BLOCK COMPLETE
     Dosage: 150 MG
     Route: 048
     Dates: start: 19980101
  7. RABEPRAZOLE SODIUM [Concomitant]
     Indication: GASTRITIS
     Dosage: 10 MG
     Route: 048
     Dates: start: 19980101
  8. ACTONEL [Concomitant]
     Indication: OSTEOPOROSIS
     Dosage: 2.5 MG
     Route: 048
     Dates: start: 19980101
  9. METHYCOBAL [Concomitant]
     Indication: DIZZINESS
     Dosage: 1500 MCG
     Route: 048
     Dates: start: 19980101
  10. PREDNISOLONE [Concomitant]
     Indication: INTERSTITIAL LUNG DISEASE
     Dosage: 5 MG
     Route: 048
     Dates: start: 19980101
  11. VERAPAMIL HCL [Concomitant]
     Indication: ATRIOVENTRICULAR BLOCK COMPLETE
     Dosage: 60 MG
     Route: 048
     Dates: start: 19980101
  12. TRANDOLAPRIL [Concomitant]
     Indication: ATRIOVENTRICULAR BLOCK COMPLETE
     Dosage: 1 MG
     Route: 048
     Dates: start: 19980101
  13. PRAVASTATIN SODIUM [Concomitant]
     Indication: HYPERLIPIDAEMIA
     Dosage: 10 MG
     Route: 048
     Dates: start: 19980101
  14. URIEF [Concomitant]
     Indication: ATRIOVENTRICULAR BLOCK COMPLETE
     Dosage: 8 MG
     Route: 048
     Dates: start: 19980101

REACTIONS (1)
  - DERMATITIS EXFOLIATIVE [None]
